FAERS Safety Report 12912426 (Version 2)
Quarter: 2016Q4

REPORT INFORMATION
  Report Type: Spontaneous
  Country: JP (occurrence: JP)
  Receive Date: 20161104
  Receipt Date: 20161206
  Transmission Date: 20170207
  Serious: Yes (Life-Threatening, Hospitalization, Disabling)
  Sender: FDA-Public Use
  Company Number: JP-ELI_LILLY_AND_COMPANY-JP201611000017

PATIENT
  Age: 48 Year
  Sex: Male

DRUGS (5)
  1. TRESIBA [Suspect]
     Active Substance: INSULIN DEGLUDEC
     Indication: TYPE 1 DIABETES MELLITUS
     Dosage: 4 IU/DAY
     Dates: end: 20150926
  2. HUMALOG [Suspect]
     Active Substance: INSULIN LISPRO
     Indication: TYPE 1 DIABETES MELLITUS
     Dosage: 10 IU/DAY
     Route: 058
     Dates: end: 20150926
  3. ZETIA [Concomitant]
     Active Substance: EZETIMIBE
     Dosage: 10 MG/DAY
     Route: 048
     Dates: start: 20150130
  4. HUMALOG [Suspect]
     Active Substance: INSULIN LISPRO
     Dosage: 22 IU/DAY
     Dates: start: 20150930
  5. DEPAKENE [Concomitant]
     Active Substance: VALPROIC ACID
     Dosage: 200 MG/DAY
     Route: 048
     Dates: start: 20150411

REACTIONS (3)
  - Hypoglycaemic encephalopathy [Recovered/Resolved with Sequelae]
  - Hypoglycaemic coma [Recovered/Resolved]
  - Pneumonia aspiration [Unknown]

NARRATIVE: CASE EVENT DATE: 20150927
